FAERS Safety Report 22212852 (Version 4)
Quarter: 2023Q4

REPORT INFORMATION
  Report Type: Report from Study
  Country: US (occurrence: US)
  Receive Date: 20230414
  Receipt Date: 20231211
  Transmission Date: 20240109
  Serious: Yes (Hospitalization, Other)
  Sender: FDA-Public Use
  Company Number: US-UCBSA-2023004390

PATIENT
  Age: 15 Year
  Sex: Male

DRUGS (6)
  1. FINTEPLA [Suspect]
     Active Substance: FENFLURAMINE
     Indication: Lennox-Gastaut syndrome
     Dosage: 3 MILLILITER, 2X/DAY (BID)
     Dates: start: 20230106
  2. FINTEPLA [Suspect]
     Active Substance: FENFLURAMINE
     Dosage: 3 MILLILITER, 2X/DAY (BID)
  3. FINTEPLA [Suspect]
     Active Substance: FENFLURAMINE
     Dosage: 3 MILLILITER, 2X/DAY (BID)
  4. FINTEPLA [Suspect]
     Active Substance: FENFLURAMINE
     Dosage: 3.5 MILLILITER, 2X/DAY (BID)
  5. FINTEPLA [Suspect]
     Active Substance: FENFLURAMINE
     Dosage: 6 MILLILITER, 2X/DAY (BID)
  6. FINTEPLA [Suspect]
     Active Substance: FENFLURAMINE
     Dosage: 6 MILLILITER, 2X/DAY (BID)

REACTIONS (8)
  - Tonic convulsion [Recovered/Resolved]
  - Seizure [Recovered/Resolved]
  - Fatigue [Not Recovered/Not Resolved]
  - Pyrexia [Not Recovered/Not Resolved]
  - Migraine [Unknown]
  - Decreased appetite [Not Recovered/Not Resolved]
  - Somnolence [Not Recovered/Not Resolved]
  - Extra dose administered [Unknown]

NARRATIVE: CASE EVENT DATE: 20230222
